FAERS Safety Report 25968085 (Version 1)
Quarter: 2025Q4

REPORT INFORMATION
  Report Type: Spontaneous
  Country: US (occurrence: US)
  Receive Date: 20251028
  Receipt Date: 20251028
  Transmission Date: 20260117
  Serious: No
  Sender: MERCK SHARP & DOHME LLC
  Company Number: US-009507513-2335340

PATIENT
  Sex: Female

DRUGS (1)
  1. KEYTRUDA [Suspect]
     Active Substance: PEMBROLIZUMAB
     Indication: Hodgkin^s disease
     Dates: start: 20250701, end: 20250910

REACTIONS (3)
  - Skin abrasion [Unknown]
  - Skin erosion [Unknown]
  - Rash [Unknown]

NARRATIVE: CASE EVENT DATE: 20250101
